FAERS Safety Report 6554860-9 (Version None)
Quarter: 2010Q1

REPORT INFORMATION
  Report Type: 
  Country: None (occurrence: None)
  Receive Date: 20100127
  Receipt Date: 20100115
  Transmission Date: 20100710
  Serious: Yes (Hospitalization)
  Sender: FDA-Public Use
  Company Number: FR-GENENTECH-297152

PATIENT
  Sex: Female

DRUGS (11)
  1. MABTHERA [Suspect]
     Indication: RHEUMATOID ARTHRITIS
     Dosage: 2 DF, Q2W
     Route: 042
     Dates: start: 20080402
  2. MABTHERA [Suspect]
     Dosage: 2 DF, Q2W
     Route: 042
     Dates: start: 20090223
  3. MABTHERA [Suspect]
     Dosage: UNK
     Route: 042
     Dates: start: 20091002, end: 20091002
  4. METHOTREXATE [Concomitant]
     Indication: THERAPEUTIC PROCEDURE
     Dosage: 1 DF, UNK
  5. SPECIAFOLDINE [Concomitant]
     Indication: THERAPEUTIC PROCEDURE
     Dosage: 5 MG, UNK
  6. CORTANCYL [Concomitant]
     Indication: THERAPEUTIC PROCEDURE
     Dosage: UNK
  7. FOSAVANCE [Concomitant]
     Indication: THERAPEUTIC PROCEDURE
     Dosage: 1 DF, UNK
  8. DIFFU K [Concomitant]
     Indication: THERAPEUTIC PROCEDURE
     Dosage: 1 DF, UNK
  9. OROCAL [Concomitant]
     Indication: THERAPEUTIC PROCEDURE
     Dosage: UNK
  10. NEXIUM [Concomitant]
     Indication: THERAPEUTIC PROCEDURE
     Dosage: UNK
  11. KLIPAL [Concomitant]
     Indication: DRUG USE FOR UNKNOWN INDICATION
     Dosage: 325 MG, UNK

REACTIONS (1)
  - NEUTROPENIA [None]
